FAERS Safety Report 5147285-4 (Version None)
Quarter: 2006Q4

REPORT INFORMATION
  Report Type: 
  Country: None (occurrence: None)
  Receive Date: 20061103
  Receipt Date: 20061023
  Transmission Date: 20070319
  Serious: Yes (Hospitalization)
  Sender: FDA-Public Use
  Company Number: 2006131334

PATIENT
  Age: 40 Year
  Sex: Female
  Weight: 88.4514 kg

DRUGS (9)
  1. CELEBREX [Suspect]
     Indication: OSTEOARTHRITIS
     Dosage: 200 MG (200 MG, 1 IN 1 D)
  2. ALEVE [Concomitant]
  3. CODEINE SUL TAB [Concomitant]
  4. DARVOCET [Concomitant]
  5. MORPHINE [Concomitant]
  6. PERCOCET (OXYCODONE HYDROCHLORIDE, PARACEMTAMOL) [Concomitant]
  7. ACETAMINOPHEN [Concomitant]
  8. ULTRAM [Concomitant]
  9. VOLTAREN [Concomitant]

REACTIONS (3)
  - ASTHMA [None]
  - MYOCARDIAL INFARCTION [None]
  - PULMONARY EMBOLISM [None]
